FAERS Safety Report 6243403-5 (Version None)
Quarter: 2009Q2

REPORT INFORMATION
  Report Type: 
  Country: None (occurrence: None)
  Receive Date: 20090622
  Receipt Date: 20090622
  Transmission Date: 20091009
  Serious: No
  Sender: FDA-Public Use
  Company Number: None

PATIENT
  Sex: Female
  Weight: 74.8435 kg

DRUGS (1)
  1. ZICAM COLD REMEDY GEL SWAB ZINCUM GLUCONICUM 2X ZICAM LLC/MARTIXX INIT [Suspect]
     Indication: NASOPHARYNGITIS
     Dosage: 1 SWAB 2-3 TIMES/WEEK NASAL
     Route: 045
     Dates: start: 20040901, end: 20080201

REACTIONS (1)
  - ANOSMIA [None]
